FAERS Safety Report 9487094 (Version 1)
Quarter: 2013Q3

REPORT INFORMATION
  Report Type: Spontaneous
  Country: TW (occurrence: TW)
  Receive Date: 20130829
  Receipt Date: 20130829
  Transmission Date: 20140515
  Serious: Yes (Other)
  Sender: FDA-Public Use
  Company Number: TW-BAYER-2013-101939

PATIENT
  Age: 67 Year
  Sex: Female

DRUGS (4)
  1. MOXIFLOXACIN ORAL [Suspect]
     Indication: PNEUMONIA
     Dosage: 400 MG/DAY
  2. WARFARIN [Suspect]
     Indication: THROMBOSIS PROPHYLAXIS
     Dosage: 2.5 MG/DAY
  3. FUROSEMIDE [Concomitant]
     Dosage: 40 MG/DAY
  4. PANTOPRAZOLE [Concomitant]
     Dosage: 40 MG/DAY

REACTIONS (5)
  - Peritoneal haemorrhage [None]
  - Haematoma [None]
  - Drug interaction [None]
  - Prothrombin time prolonged [None]
  - International normalised ratio increased [None]
